FAERS Safety Report 8223786-7 (Version None)
Quarter: 2012Q1

REPORT INFORMATION
  Report Type: 
  Country: None (occurrence: None)
  Receive Date: 20120321
  Receipt Date: 20120321
  Transmission Date: 20120608
  Serious: Yes (Hospitalization)
  Sender: FDA-Public Use
  Company Number: None

PATIENT
  Age: 56 Year
  Sex: Female
  Weight: 107.5 kg

DRUGS (25)
  1. GUAIFENSIN [Concomitant]
  2. CLONAZEPAM [Concomitant]
  3. PREDNISONE [Concomitant]
  4. ADVAIR DISKUS 100/50 [Concomitant]
  5. LEVOTHYROXINE SODIUM [Concomitant]
  6. ONDANSETRON [Concomitant]
  7. VENTOLIN [Concomitant]
  8. CHOLECALCIFEROL, [Concomitant]
  9. WARFARIN SODIUM [Suspect]
     Indication: DEEP VEIN THROMBOSIS
     Dosage: 5 MG
     Route: 048
     Dates: start: 20120227, end: 20120301
  10. TRAZODONE HCL [Concomitant]
  11. LISINOPRIL [Concomitant]
  12. ZOLPIDEM [Concomitant]
  13. OXYCODONE HCL [Concomitant]
  14. BIOTIN [Concomitant]
  15. CYMBALTA [Concomitant]
  16. SEROQUEL [Concomitant]
  17. METFORMIN HCL [Concomitant]
  18. PROVENTIL [Concomitant]
  19. PREGABALIN [Concomitant]
  20. OMEPRAZOLE [Concomitant]
  21. FLUTICASONE PROPIONATE [Concomitant]
  22. PROCHLORPERAZINE [Concomitant]
  23. ACYCLOVIR [Concomitant]
  24. SINGULAIR [Concomitant]
  25. AMLODIPINE [Concomitant]

REACTIONS (5)
  - BREAST PAIN [None]
  - SKIN NECROSIS [None]
  - BREAST SWELLING [None]
  - CONTUSION [None]
  - VENOUS THROMBOSIS LIMB [None]
